FAERS Safety Report 19122616 (Version 7)
Quarter: 2021Q3

REPORT INFORMATION
  Report Type: Report from Study
  Country: US (occurrence: US)
  Receive Date: 20210412
  Receipt Date: 20210830
  Transmission Date: 20211014
  Serious: No
  Sender: FDA-Public Use
  Company Number: NVSC2021US081959

PATIENT
  Age: 49 Year
  Sex: Female

DRUGS (1)
  1. MAYZENT [Suspect]
     Active Substance: SIPONIMOD
     Indication: MULTIPLE SCLEROSIS
     Dosage: 2 MG/KG, ONCE/SINGLE
     Route: 048
     Dates: start: 20210205

REACTIONS (4)
  - Fatigue [Recovering/Resolving]
  - Memory impairment [Not Recovered/Not Resolved]
  - Central nervous system lesion [Unknown]
  - Blood sodium decreased [Not Recovered/Not Resolved]

NARRATIVE: CASE EVENT DATE: 20210406
